FAERS Safety Report 24437851 (Version 1)
Quarter: 2024Q4

REPORT INFORMATION
  Report Type: Spontaneous
  Country: FR (occurrence: FR)
  Receive Date: 20241015
  Receipt Date: 20241015
  Transmission Date: 20250115
  Serious: Yes (Death, Other)
  Sender: EPIC PHARM
  Company Number: FR-EPICPHARMA-FR-2024EPCLIT01220

PATIENT
  Age: 35 Year
  Sex: Male

DRUGS (21)
  1. OXAZEPAM [Suspect]
     Active Substance: OXAZEPAM
     Indication: Product used for unknown indication
     Route: 065
  2. PRAZEPAM [Suspect]
     Active Substance: PRAZEPAM
     Indication: Post-traumatic stress disorder
     Route: 065
  3. PRAZEPAM [Suspect]
     Active Substance: PRAZEPAM
     Indication: Physical assault
  4. PRAZEPAM [Suspect]
     Active Substance: PRAZEPAM
     Indication: Depression
  5. PRAZEPAM [Suspect]
     Active Substance: PRAZEPAM
     Indication: Schizophrenia
  6. PRAZEPAM [Suspect]
     Active Substance: PRAZEPAM
     Indication: Dependence
  7. EPHEDRINE [Suspect]
     Active Substance: EPHEDRINE
     Indication: Product used for unknown indication
     Route: 065
  8. PHENYLPROPANOLAMINE [Suspect]
     Active Substance: PHENYLPROPANOLAMINE
     Indication: Product used for unknown indication
     Route: 065
  9. NORDAZEPAM [Suspect]
     Active Substance: NORDAZEPAM
     Indication: Product used for unknown indication
     Route: 065
  10. LOXAPINE [Concomitant]
     Active Substance: LOXAPINE
     Indication: Product used for unknown indication
     Route: 065
  11. ARIPIPRAZOLE [Concomitant]
     Active Substance: ARIPIPRAZOLE
     Indication: Product used for unknown indication
     Route: 065
  12. TROPATEPINE [Concomitant]
     Active Substance: TROPATEPINE
     Indication: Product used for unknown indication
     Route: 065
  13. LYSERGIDE [Concomitant]
     Active Substance: LYSERGIDE
     Indication: Product used for unknown indication
     Route: 065
  14. PSILOCYBIN [Concomitant]
     Active Substance: PSILOCYBIN
     Indication: Product used for unknown indication
     Route: 065
  15. PSEUDOEPHEDRINE [Concomitant]
     Active Substance: PSEUDOEPHEDRINE
     Indication: Product used for unknown indication
     Route: 065
  16. KETAMINE [Concomitant]
     Active Substance: KETAMINE
     Indication: Product used for unknown indication
     Route: 065
  17. MIDOMAFETAMINE [Concomitant]
     Active Substance: MIDOMAFETAMINE
     Indication: Product used for unknown indication
     Route: 065
  18. CATHINONE [Concomitant]
     Active Substance: CATHINONE
     Indication: Product used for unknown indication
     Route: 065
  19. AMPHETAMINE [Concomitant]
     Active Substance: AMPHETAMINE
     Indication: Product used for unknown indication
     Route: 065
  20. METHAMPHETAMINE HYDROCHLORIDE [Concomitant]
     Active Substance: METHAMPHETAMINE HYDROCHLORIDE
     Indication: Product used for unknown indication
     Route: 065
  21. ALCOHOL [Concomitant]
     Active Substance: ALCOHOL
     Indication: Product used for unknown indication
     Route: 065

REACTIONS (2)
  - Poisoning [Fatal]
  - Intentional product misuse [Unknown]
